FAERS Safety Report 17444827 (Version 1)
Quarter: 2020Q1

REPORT INFORMATION
  Report Type: Spontaneous
  Country: DE (occurrence: DE)
  Receive Date: 20200221
  Receipt Date: 20200221
  Transmission Date: 20200409
  Serious: Yes (Other)
  Sender: FDA-Public Use
  Company Number: DE-MYLANLABS-2020M1018144

PATIENT
  Age: 64 Year
  Sex: Male

DRUGS (25)
  1. LACOSAMIDE. [Suspect]
     Active Substance: LACOSAMIDE
     Indication: AURA
     Dosage: UNK
  2. LACOSAMIDE. [Suspect]
     Active Substance: LACOSAMIDE
     Indication: GENERALISED TONIC-CLONIC SEIZURE
  3. LACOSAMIDE. [Suspect]
     Active Substance: LACOSAMIDE
     Indication: AUTOMATISM EPILEPTIC
  4. VALPROIC ACID. [Suspect]
     Active Substance: VALPROIC ACID
     Indication: AUTOMATISM EPILEPTIC
     Dosage: UNK
  5. PRIMIDONE. [Suspect]
     Active Substance: PRIMIDONE
     Indication: AURA
     Dosage: UNK
  6. LEVETIRACETAM. [Suspect]
     Active Substance: LEVETIRACETAM
     Indication: AURA
     Dosage: 3000 MILLIGRAM, QD
  7. ZONISAMIDE. [Suspect]
     Active Substance: ZONISAMIDE
     Indication: AUTOMATISM EPILEPTIC
  8. LAMOTRIGINE. [Suspect]
     Active Substance: LAMOTRIGINE
     Indication: AURA
  9. GABAPENTIN. [Suspect]
     Active Substance: GABAPENTIN
     Indication: AUTOMATISM EPILEPTIC
  10. GABAPENTIN. [Suspect]
     Active Substance: GABAPENTIN
     Indication: AURA
  11. OXCARBAZEPINE. [Suspect]
     Active Substance: OXCARBAZEPINE
     Indication: AURA
     Dosage: UNK
  12. OXCARBAZEPINE. [Suspect]
     Active Substance: OXCARBAZEPINE
     Indication: AUTOMATISM EPILEPTIC
  13. PRIMIDONE. [Suspect]
     Active Substance: PRIMIDONE
     Indication: GENERALISED TONIC-CLONIC SEIZURE
  14. LEVETIRACETAM. [Suspect]
     Active Substance: LEVETIRACETAM
     Indication: AUTOMATISM EPILEPTIC
  15. LEVETIRACETAM. [Suspect]
     Active Substance: LEVETIRACETAM
     Indication: GENERALISED TONIC-CLONIC SEIZURE
  16. ZONISAMIDE. [Suspect]
     Active Substance: ZONISAMIDE
     Indication: GENERALISED TONIC-CLONIC SEIZURE
  17. VALPROIC ACID. [Suspect]
     Active Substance: VALPROIC ACID
     Indication: AURA
  18. LAMOTRIGINE. [Suspect]
     Active Substance: LAMOTRIGINE
     Indication: AUTOMATISM EPILEPTIC
  19. GABAPENTIN. [Suspect]
     Active Substance: GABAPENTIN
     Indication: GENERALISED TONIC-CLONIC SEIZURE
     Dosage: UNK
  20. ZONISAMIDE. [Suspect]
     Active Substance: ZONISAMIDE
     Indication: AURA
     Dosage: UNK
  21. OXCARBAZEPINE. [Suspect]
     Active Substance: OXCARBAZEPINE
     Indication: GENERALISED TONIC-CLONIC SEIZURE
  22. PRIMIDONE. [Suspect]
     Active Substance: PRIMIDONE
     Indication: AUTOMATISM EPILEPTIC
  23. OLANZAPINE. [Suspect]
     Active Substance: OLANZAPINE
     Indication: PRODUCT USED FOR UNKNOWN INDICATION
     Dosage: UNK
  24. VALPROIC ACID. [Suspect]
     Active Substance: VALPROIC ACID
     Indication: GENERALISED TONIC-CLONIC SEIZURE
  25. LAMOTRIGINE. [Suspect]
     Active Substance: LAMOTRIGINE
     Indication: GENERALISED TONIC-CLONIC SEIZURE
     Dosage: 900 MILLIGRAM, QD

REACTIONS (5)
  - Drug ineffective [Unknown]
  - Therapeutic product effect incomplete [Recovered/Resolved]
  - Psychotic symptom [Recovered/Resolved]
  - Depressive symptom [Recovered/Resolved]
  - Delusion [Recovered/Resolved]
